FAERS Safety Report 17009678 (Version 1)
Quarter: 2019Q4

REPORT INFORMATION
  Report Type: Report from Study
  Country: AU (occurrence: AU)
  Receive Date: 20191108
  Receipt Date: 20191108
  Transmission Date: 20200122
  Serious: Yes (Other)
  Sender: FDA-Public Use
  Company Number: AU-BRISTOL-MYERS SQUIBB COMPANY-BMS-2019-103673

PATIENT
  Sex: Male

DRUGS (1)
  1. NIVOLUMAB [Suspect]
     Active Substance: NIVOLUMAB
     Indication: MALIGNANT MELANOMA
     Dosage: 480 MILLIGRAM, 28 DAYS
     Route: 065

REACTIONS (10)
  - Headache [Unknown]
  - Abdominal pain upper [Unknown]
  - Vomiting [Unknown]
  - Somnolence [Unknown]
  - Diarrhoea [Unknown]
  - Condition aggravated [Unknown]
  - Hemiparesis [Unknown]
  - Pain [Unknown]
  - Decreased appetite [Unknown]
  - Post-traumatic stress disorder [Unknown]
